FAERS Safety Report 5941409-4 (Version None)
Quarter: 2008Q4

REPORT INFORMATION
  Report Type: 
  Country: None (occurrence: None)
  Receive Date: 20081031
  Receipt Date: 20081022
  Transmission Date: 20090506
  Serious: Yes (Hospitalization)
  Sender: FDA-Public Use
  Company Number: VISP-NO-0708S-0348

PATIENT
  Age: 66 Year
  Sex: Female
  Weight: 58 kg

DRUGS (4)
  1. VISIPAQUE [Suspect]
     Indication: CHEST PAIN
     Dosage: 100ML, SINGLE DOSE, I.A.
     Route: 013
     Dates: start: 20070619, end: 20070619
  2. ACETYLSALICYCLIC ACID (HJERTEMAGNYL) [Concomitant]
  3. VERAPAMIL (ISOPTIN RETARD) [Concomitant]
  4. GLYCERYL TRINITRATE (NITROGLYCERIN ^DAK^) [Concomitant]

REACTIONS (11)
  - ANXIETY [None]
  - DYSPHONIA [None]
  - FATIGUE [None]
  - HEADACHE [None]
  - HYPOAESTHESIA ORAL [None]
  - MALAISE [None]
  - MEMORY IMPAIRMENT [None]
  - OEDEMA MOUTH [None]
  - OROPHARYNGEAL PAIN [None]
  - SENSORY DISTURBANCE [None]
  - SPEECH DISORDER [None]
